FAERS Safety Report 5688299-5 (Version None)
Quarter: 2008Q1

REPORT INFORMATION
  Report Type: 
  Country: None (occurrence: None)
  Receive Date: 20080331
  Receipt Date: 20080326
  Transmission Date: 20080703
  Serious: Yes (Death)
  Sender: FDA-Public Use
  Company Number: DE-ABBOTT-08P-062-0443714-00

PATIENT
  Sex: Female
  Weight: 70 kg

DRUGS (19)
  1. ZEMPLAR [Suspect]
     Indication: HYPERPARATHYROIDISM SECONDARY
     Route: 042
     Dates: start: 20060915
  2. ZEMPLAR [Suspect]
     Route: 042
     Dates: start: 20060926
  3. ZEMPLAR [Suspect]
     Route: 042
     Dates: start: 20061017
  4. ZEMPLAR [Suspect]
     Route: 042
     Dates: start: 20061121, end: 20061221
  5. ZEMPLAR [Suspect]
     Route: 042
     Dates: start: 20070130, end: 20070208
  6. CYANOCOBALAMIN [Concomitant]
     Indication: DRUG USE FOR UNKNOWN INDICATION
     Dates: start: 20050401
  7. SODIUM FERRIGLUCONATE [Concomitant]
     Indication: DRUG USE FOR UNKNOWN INDICATION
     Dates: start: 20050601
  8. FOLIC ACID [Concomitant]
     Indication: DRUG USE FOR UNKNOWN INDICATION
     Dates: start: 20050801
  9. DARBEPOETIN ALFA [Concomitant]
     Indication: DRUG USE FOR UNKNOWN INDICATION
     Dates: start: 20060601, end: 20061019
  10. DARBEPOETIN ALFA [Concomitant]
     Dates: start: 20061019, end: 20070115
  11. DARBEPOETIN ALFA [Concomitant]
     Dates: start: 20070115
  12. MADOPAR [Concomitant]
     Indication: DRUG USE FOR UNKNOWN INDICATION
     Dates: start: 20041101
  13. MADOPAR [Concomitant]
     Dosage: RESTEX RETARD
     Dates: start: 20041101
  14. BISOPROLOL FUMARATE [Concomitant]
     Indication: DRUG USE FOR UNKNOWN INDICATION
     Dates: start: 20061230
  15. OMEPRAZOLE [Concomitant]
     Indication: DRUG USE FOR UNKNOWN INDICATION
     Dates: start: 20050401
  16. CLOPIDOGREL [Concomitant]
     Indication: DRUG USE FOR UNKNOWN INDICATION
     Dates: start: 20051101
  17. TOREMIFEN [Concomitant]
     Indication: DRUG USE FOR UNKNOWN INDICATION
     Dates: start: 20051101
  18. FLUOXETINE HYDROCHLORIDE [Concomitant]
     Indication: DRUG USE FOR UNKNOWN INDICATION
     Dates: start: 20061013, end: 20061024
  19. VANCOMYCIN [Concomitant]
     Indication: DRUG USE FOR UNKNOWN INDICATION
     Dates: start: 20061123, end: 20061201

REACTIONS (2)
  - CARDIAC ARREST [None]
  - HYPERCALCAEMIA [None]
